FAERS Safety Report 22089920 (Version 1)
Quarter: 2023Q1

REPORT INFORMATION
  Report Type: Spontaneous
  Country: TR (occurrence: TR)
  Receive Date: 20230313
  Receipt Date: 20230313
  Transmission Date: 20230418
  Serious: Yes (Other)
  Sender: FDA-Public Use
  Company Number: ALC2023TR001297

PATIENT
  Age: 69 Year
  Sex: Male
  Weight: 85 kg

DRUGS (1)
  1. SIMBRINZA [Suspect]
     Active Substance: BRIMONIDINE TARTRATE\BRINZOLAMIDE
     Indication: Glaucoma
     Dosage: 1 DRP, BID (1 DRP IN THE MORNING AND 1 DRP IN THE NIGHT)
     Dates: start: 202203, end: 202211

REACTIONS (3)
  - Eye haemorrhage [Recovered/Resolved with Sequelae]
  - Eye disorder [Recovered/Resolved with Sequelae]
  - Madarosis [Recovered/Resolved with Sequelae]

NARRATIVE: CASE EVENT DATE: 20220301
